FAERS Safety Report 5022158-6 (Version None)
Quarter: 2006Q2

REPORT INFORMATION
  Report Type: 
  Country: None (occurrence: None)
  Receive Date: 20060605
  Receipt Date: 20060523
  Transmission Date: 20061013
  Serious: Yes (Hospitalization)
  Sender: FDA-Public Use
  Company Number: 2006067876

PATIENT
  Age: 82 Year
  Sex: Female

DRUGS (1)
  1. UNASYN [Suspect]
     Indication: ILL-DEFINED DISORDER
     Dosage: 3 GRAM, INTRAVENOUS
     Route: 042
     Dates: start: 20060512, end: 20060516

REACTIONS (4)
  - HEPATIC FAILURE [None]
  - PLATELET COUNT DECREASED [None]
  - PYREXIA [None]
  - WHITE BLOOD CELL COUNT INCREASED [None]
